FAERS Safety Report 9303141 (Version 1)
Quarter: 2013Q1

REPORT INFORMATION
  Report Type: Spontaneous
  Country: US (occurrence: None)
  Receive Date: 20130107
  Receipt Date: 20130107
  Transmission Date: 20140127
  Serious: Yes (Other)
  Sender: FDA-Public Use
  Company Number: ACO_26529_2011

PATIENT
  Age: 59 Year
  Sex: Female

DRUGS (1)
  1. AMPYRA (DALFAMPRIDINE) TABLET, 10MG [Suspect]
     Indication: GAIT DISTURBANCE
     Dates: start: 20100629

REACTIONS (10)
  - Arthropathy [None]
  - Head injury [None]
  - Loss of consciousness [None]
  - Fall [None]
  - Pain [None]
  - Oedema peripheral [None]
  - Tremor [None]
  - Grip strength decreased [None]
  - Hypoaesthesia [None]
  - Dizziness [None]
